FAERS Safety Report 10061469 (Version 1)
Quarter: 2014Q2

REPORT INFORMATION
  Report Type: Spontaneous
  Country: FR (occurrence: FR)
  Receive Date: 20140407
  Receipt Date: 20140407
  Transmission Date: 20141212
  Serious: Yes (Hospitalization)
  Sender: FDA-Public Use
  Company Number: FR-JNJFOC-20140402750

PATIENT
  Age: 83 Year
  Sex: Female

DRUGS (3)
  1. XARELTO [Suspect]
     Indication: CEREBROVASCULAR ACCIDENT PROPHYLAXIS
     Route: 048
     Dates: start: 201304, end: 20140221
  2. XARELTO [Suspect]
     Indication: ATRIAL FIBRILLATION
     Route: 048
     Dates: start: 201304, end: 20140221
  3. CANDESARTAN CILEXETIL [Suspect]
     Indication: HYPERTENSION
     Route: 048
     Dates: start: 20140219, end: 20140221

REACTIONS (1)
  - Renal failure acute [Recovered/Resolved]
